FAERS Safety Report 4589761-9 (Version None)
Quarter: 2005Q1

REPORT INFORMATION
  Report Type: 
  Country: None (occurrence: None)
  Receive Date: 20050217
  Receipt Date: 20050209
  Transmission Date: 20050727
  Serious: Yes (Hospitalization)
  Sender: FDA-Public Use
  Company Number: 2005012827

PATIENT
  Age: 69 Year
  Sex: Female

DRUGS (3)
  1. TORVAST (ATORVASTATIN_) [Suspect]
     Indication: ILL-DEFINED DISORDER
     Dosage: 10 MG (1 IN 1 D), ORAL
     Route: 048
     Dates: start: 19940101, end: 20041110
  2. CLAVULIN (AMOXICILLIN TRIHYDRATE, CLAVULANATE POTASSIUM) [Suspect]
     Indication: ILL-DEFINED DISORDER
     Dosage: 2000 MG (1000 MG, 2 IN 1 D), ORAL
     Route: 048
     Dates: start: 20041024, end: 20041116
  3. AMIODARONE HCL [Suspect]
     Indication: ILL-DEFINED DISORDER
     Dosage: 200 MG (200 MG, 1 IN 1 D), ORAL
     Route: 048
     Dates: start: 20040901, end: 20041114

REACTIONS (3)
  - BILE DUCT STENOSIS [None]
  - HEPATITIS CHOLESTATIC [None]
  - PRURITUS [None]
